FAERS Safety Report 4613356-1 (Version None)
Quarter: 2005Q1

REPORT INFORMATION
  Report Type: 
  Country: None (occurrence: None)
  Receive Date: 20050316
  Receipt Date: 20050303
  Transmission Date: 20050727
  Serious: Yes (Life-Threatening, Hospitalization)
  Sender: FDA-Public Use
  Company Number: 2005033899

PATIENT
  Age: 55 Year
  Sex: Male
  Weight: 58 kg

DRUGS (9)
  1. VIAGRA [Suspect]
     Indication: ILL-DEFINED DISORDER
     Dosage: 25 MG (AS NECESSARY), ORAL
     Route: 048
  2. PROPIVERINE HYDROCHLORIDE (PROPIVERINE HYDROCHLORIDE) [Concomitant]
  3. REBAMIPIDE (REBAMIPIDE) [Concomitant]
  4. CALCIUM CARBONATE (CALCIUM CARBONATE) [Concomitant]
  5. ALLOPURINOL [Concomitant]
  6. FAMOTIDINE [Concomitant]
  7. AMLODIPINE BESYLATE [Concomitant]
  8. BOPINDOLOL (BOPINDOLOL) [Concomitant]
  9. SEVELAMER HYDROCHLORIDE (SEVELAMER HYDROCHLORIDE) [Concomitant]

REACTIONS (12)
  - ASPARTATE AMINOTRANSFERASE INCREASED [None]
  - BLOOD CREATINE INCREASED [None]
  - BLOOD CREATINE PHOSPHOKINASE INCREASED [None]
  - BLOOD CREATINE PHOSPHOKINASE MB INCREASED [None]
  - BLOOD LACTATE DEHYDROGENASE INCREASED [None]
  - BLOOD UREA INCREASED [None]
  - CORONARY ARTERY OCCLUSION [None]
  - DEHYDRATION [None]
  - HAEMATOCRIT DECREASED [None]
  - HAEMOGLOBIN DECREASED [None]
  - MYOCARDIAL INFARCTION [None]
  - RED BLOOD CELL COUNT DECREASED [None]
